FAERS Safety Report 9207788 (Version 1)
Quarter: 2013Q2

REPORT INFORMATION
  Report Type: Spontaneous
  Country: US (occurrence: US)
  Receive Date: 20130403
  Receipt Date: 20130403
  Transmission Date: 20140414
  Serious: Yes (Other)
  Sender: FDA-Public Use
  Company Number: US-GLAXOSMITHKLINE-A1017524A

PATIENT
  Age: 46 Year
  Sex: Female

DRUGS (1)
  1. TYKERB [Suspect]
     Indication: NEOPLASM MALIGNANT
     Dosage: 1500MG PER DAY
     Route: 048
     Dates: start: 20130122, end: 20130214

REACTIONS (2)
  - Rash generalised [Recovering/Resolving]
  - Urticaria [Recovering/Resolving]
